FAERS Safety Report 7590130-8 (Version None)
Quarter: 2011Q3

REPORT INFORMATION
  Report Type: 
  Country: None (occurrence: None)
  Receive Date: 20110705
  Receipt Date: 20110622
  Transmission Date: 20111222
  Serious: Yes (Hospitalization)
  Sender: FDA-Public Use
  Company Number: B0730325A

PATIENT
  Age: 55 Year
  Sex: Female

DRUGS (6)
  1. OMEPRAZOLE [Concomitant]
  2. IDALPREM [Concomitant]
     Dates: start: 20010101, end: 20110530
  3. SUMATRIPTAN SUCCINATE [Suspect]
     Indication: MIGRAINE
     Route: 048
     Dates: start: 20110523, end: 20110530
  4. SENART [Concomitant]
  5. SUMIAL [Concomitant]
     Dates: start: 20090101, end: 20110523
  6. MOVIPREP [Concomitant]
     Route: 048
     Dates: end: 20110530

REACTIONS (5)
  - HYPOMAGNESAEMIA [None]
  - HYPOKALAEMIA [None]
  - PARAESTHESIA ORAL [None]
  - TETANY [None]
  - HYPOCALCAEMIA [None]
